FAERS Safety Report 5880425-8 (Version None)
Quarter: 2008Q3

REPORT INFORMATION
  Report Type: 
  Country: None (occurrence: None)
  Receive Date: 20080912
  Receipt Date: 20080818
  Transmission Date: 20090109
  Serious: No
  Sender: FDA-Public Use
  Company Number: PR-ABBOTT-08P-131-0471473-00

PATIENT
  Sex: Female
  Weight: 81.72 kg

DRUGS (5)
  1. HUMIRA [Suspect]
     Indication: RHEUMATOID ARTHRITIS
     Route: 058
  2. ASTHMA MEDICATION [Concomitant]
     Indication: ASTHMA
  3. HYZAAR [Concomitant]
     Indication: HYPERTENSION
     Dosage: 100/25
     Route: 048
  4. NSAID'S [Concomitant]
     Indication: RHEUMATOID ARTHRITIS
  5. LEVOTHYROXINE SODIUM [Concomitant]
     Indication: HYPOTHYROIDISM
     Route: 048

REACTIONS (4)
  - ABDOMINAL PAIN UPPER [None]
  - FATIGUE [None]
  - HAEMATOMA [None]
  - PIGMENTATION DISORDER [None]
